FAERS Safety Report 16898112 (Version 1)
Quarter: 2019Q4

REPORT INFORMATION
  Report Type: Spontaneous
  Country: US (occurrence: US)
  Receive Date: 20191009
  Receipt Date: 20191009
  Transmission Date: 20200122
  Serious: Yes (Other)
  Sender: FDA-Public Use
  Company Number: US-PFIZER INC-2019433937

PATIENT
  Age: 57 Year
  Sex: Male
  Weight: 111 kg

DRUGS (3)
  1. COUMADIN [Concomitant]
     Active Substance: WARFARIN SODIUM
     Indication: ANTICOAGULANT THERAPY
     Dosage: 5 MG, 1X/DAY
     Route: 048
  2. VIAGRA [Suspect]
     Active Substance: SILDENAFIL CITRATE
     Dosage: 50 MG, AS NEEDED (25 MG AND 50 MG. I TAKE IT EITHER OR ALL)
     Route: 048
  3. VIAGRA [Suspect]
     Active Substance: SILDENAFIL CITRATE
     Indication: TYPE 2 DIABETES MELLITUS
     Dosage: 25 MG, AS NEEDED (25 MG AND 50 MG. I TAKE IT EITHER OR ALL)
     Route: 048

REACTIONS (6)
  - Product use in unapproved indication [Unknown]
  - Cerebrovascular accident [Unknown]
  - Off label use [Unknown]
  - Colon cancer [Unknown]
  - Abdominal pain upper [Unknown]
  - Hiccups [Unknown]

NARRATIVE: CASE EVENT DATE: 20080308
